FAERS Safety Report 24529726 (Version 1)
Quarter: 2024Q4

REPORT INFORMATION
  Report Type: Spontaneous
  Country: CL (occurrence: CL)
  Receive Date: 20241021
  Receipt Date: 20241021
  Transmission Date: 20250114
  Serious: Yes (Hospitalization, Other)
  Sender: EPIC PHARM
  Company Number: CL-EPICPHARMA-CL-2024EPCLIT01254

PATIENT
  Age: 37 Year
  Sex: Male

DRUGS (10)
  1. ISONIAZID [Suspect]
     Active Substance: ISONIAZID
     Indication: Pulmonary tuberculosis
     Route: 048
  2. ISONIAZID [Suspect]
     Active Substance: ISONIAZID
     Route: 065
  3. ISONIAZID [Suspect]
     Active Substance: ISONIAZID
     Route: 048
  4. ETHAMBUTOL [Concomitant]
     Active Substance: ETHAMBUTOL HYDROCHLORIDE
     Indication: Vomiting
     Route: 065
  5. RIFAMPIN [Concomitant]
     Active Substance: RIFAMPIN
     Indication: Pulmonary tuberculosis
     Route: 048
  6. RIFAMPIN [Concomitant]
     Active Substance: RIFAMPIN
     Route: 048
  7. LEVOFLOXACIN [Concomitant]
     Active Substance: LEVOFLOXACIN
     Indication: Pulmonary tuberculosis
     Route: 051
  8. MEROPENEM [Concomitant]
     Active Substance: MEROPENEM
     Indication: Pulmonary tuberculosis
     Route: 051
  9. PYRIDOXINE [Concomitant]
     Active Substance: PYRIDOXINE
     Route: 048
  10. ONDANSETRON [Concomitant]
     Active Substance: ONDANSETRON
     Indication: Vomiting
     Route: 065

REACTIONS (1)
  - Impaired gastric emptying [Recovered/Resolved]
